FAERS Safety Report 13508405 (Version 1)
Quarter: 2017Q2

REPORT INFORMATION
  Report Type: Report from Study
  Country: None (occurrence: DE)
  Receive Date: 20170503
  Receipt Date: 20170503
  Transmission Date: 20170830
  Serious: Yes (Hospitalization, Other)
  Sender: FDA-Public Use
  Company Number: DE-ABBVIE-17K-062-1959065-00

PATIENT
  Age: 68 Year
  Sex: Male
  Weight: 92 kg

DRUGS (2)
  1. METEX (METHOTREXATE SODIUM) [Concomitant]
     Active Substance: METHOTREXATE SODIUM
     Indication: PRODUCT USED FOR UNKNOWN INDICATION
     Route: 048
     Dates: start: 20120601
  2. HUMIRA [Suspect]
     Active Substance: ADALIMUMAB
     Indication: RHEUMATOID ARTHRITIS
     Route: 058
     Dates: start: 20140429

REACTIONS (8)
  - Fibrosis [Unknown]
  - Parakeratosis [Unknown]
  - Laryngeal dysplasia [Unknown]
  - Laryngeal cancer [Not Recovered/Not Resolved]
  - Increased bronchial secretion [Unknown]
  - Inflammation [Unknown]
  - Mucosal membrane hyperplasia [Unknown]
  - Nasal turbinate hypertrophy [Unknown]

NARRATIVE: CASE EVENT DATE: 20161006
